FAERS Safety Report 18716414 (Version 1)
Quarter: 2021Q1

REPORT INFORMATION
  Report Type: Spontaneous
  Country: US (occurrence: US)
  Receive Date: 20210107
  Receipt Date: 20210107
  Transmission Date: 20210419
  Serious: Yes (Death)
  Sender: FDA-Public Use
  Company Number: None

PATIENT
  Age: 28 Year
  Sex: Male
  Weight: 63 kg

DRUGS (2)
  1. ADULT MULTI?VITAMIN [Concomitant]
  2. LEXAPRO [Suspect]
     Active Substance: ESCITALOPRAM OXALATE
     Indication: ANXIETY
     Dosage: ?          QUANTITY:30 TABLET(S);?
     Route: 048
     Dates: start: 20200928, end: 20201108

REACTIONS (8)
  - Suicidal ideation [None]
  - Sexual dysfunction [None]
  - Migraine [None]
  - Sleep disorder [None]
  - Decreased appetite [None]
  - Mania [None]
  - Nausea [None]
  - Depression [None]

NARRATIVE: CASE EVENT DATE: 20201108
